FAERS Safety Report 16944921 (Version 1)
Quarter: 2019Q4

REPORT INFORMATION
  Report Type: Spontaneous
  Country: PT (occurrence: PT)
  Receive Date: 20191022
  Receipt Date: 20191022
  Transmission Date: 20200122
  Serious: Yes (Other)
  Sender: FDA-Public Use
  Company Number: PT-TEVA-2019-PT-1125343

PATIENT
  Age: 58 Year
  Sex: Male

DRUGS (6)
  1. BIPERIDEN [Suspect]
     Active Substance: BIPERIDEN
     Route: 065
  2. OMEPRAZOLE. [Concomitant]
     Active Substance: OMEPRAZOLE
     Route: 065
  3. HALOPERIDOL. [Suspect]
     Active Substance: HALOPERIDOL
     Route: 065
  4. IPRATROPIUM BROMIDE. [Concomitant]
     Active Substance: IPRATROPIUM BROMIDE
     Route: 065
  5. CLOZAPINE TABLETS, 50 MG, 100 MG, 200 MG (GOLDLINE) [Suspect]
     Active Substance: CLOZAPINE
     Route: 065
  6. LORAZEPAM. [Concomitant]
     Active Substance: LORAZEPAM
     Route: 065

REACTIONS (1)
  - Colitis ischaemic [Recovered/Resolved]
